FAERS Safety Report 6060727-5 (Version None)
Quarter: 2009Q1

REPORT INFORMATION
  Report Type: 
  Country: None (occurrence: None)
  Receive Date: 20090202
  Receipt Date: 20090120
  Transmission Date: 20090719
  Serious: Yes (Hospitalization)
  Sender: FDA-Public Use
  Company Number: FR-ELI_LILLY_AND_COMPANY-FR200812002285

PATIENT
  Age: 77 Year
  Sex: Female
  Weight: 60 kg

DRUGS (3)
  1. FORTEO [Suspect]
     Indication: OSTEOPOROSIS
     Dosage: 20 UG, DAILY (1/D)
     Route: 058
     Dates: start: 20071214
  2. ENBREL [Concomitant]
     Indication: POLYARTHRITIS
     Dosage: 25 MG, DAILY (1/D)
     Route: 058
     Dates: start: 20070101
  3. MEDROL [Concomitant]
     Indication: POLYARTHRITIS
     Dosage: 4 MG, UNKNOWN
     Route: 048
     Dates: start: 20050101

REACTIONS (1)
  - SCIATICA [None]
